FAERS Safety Report 9396727 (Version 1)
Quarter: 2013Q3

REPORT INFORMATION
  Report Type: Spontaneous
  Country: US (occurrence: US)
  Receive Date: 20130712
  Receipt Date: 20130712
  Transmission Date: 20140515
  Serious: No
  Sender: FDA-Public Use
  Company Number: US-009507513-1307USA005479

PATIENT
  Age: 20 Year
  Sex: Female
  Weight: 51.7 kg

DRUGS (2)
  1. NEXPLANON [Suspect]
     Indication: CONTRACEPTION
     Dosage: 1 ROD, ONCE
     Route: 059
     Dates: start: 20130521
  2. DESOGEN [Suspect]

REACTIONS (2)
  - Menorrhagia [Not Recovered/Not Resolved]
  - Rash [Recovered/Resolved]
